FAERS Safety Report 11098880 (Version 1)
Quarter: 2015Q2

REPORT INFORMATION
  Report Type: Spontaneous
  Country: US (occurrence: US)
  Receive Date: 20150508
  Receipt Date: 20150508
  Transmission Date: 20150821
  Serious: Yes (Other)
  Sender: FDA-Public Use
  Company Number: US-PFIZER INC-2015148050

PATIENT
  Age: 62 Year
  Sex: Female
  Weight: 71.2 kg

DRUGS (3)
  1. LYRICA [Suspect]
     Active Substance: PREGABALIN
     Indication: NEURALGIA
     Dosage: 25 MG, 2X/DAY (ONE IN MORNING AND ONE AT NIGHT)
  2. LYRICA [Suspect]
     Active Substance: PREGABALIN
     Dosage: 100 MG, 2X/DAY (ONE IN MORNING AND ONE AT NIGHT)
     Dates: start: 2008
  3. KLONOPIN [Concomitant]
     Active Substance: CLONAZEPAM

REACTIONS (19)
  - Abdominal pain [Unknown]
  - Oesophageal spasm [Unknown]
  - Insomnia [Unknown]
  - Infection [Unknown]
  - Gastrointestinal disorder [Unknown]
  - Ocular hyperaemia [Unknown]
  - Constipation [Unknown]
  - Burning sensation [Unknown]
  - Vision blurred [Unknown]
  - Exposure to mould [Unknown]
  - Abdominal distension [Unknown]
  - Dyspnoea [Unknown]
  - Visual impairment [Unknown]
  - Hypersensitivity [Unknown]
  - Pre-existing condition improved [Unknown]
  - Eye pruritus [Unknown]
  - Pain [Unknown]
  - Eye swelling [Unknown]
  - Therapeutic response unexpected [Unknown]
